FAERS Safety Report 6784817-4 (Version None)
Quarter: 2010Q2

REPORT INFORMATION
  Report Type: 
  Country: None (occurrence: None)
  Receive Date: 20100622
  Receipt Date: 20100616
  Transmission Date: 20101027
  Serious: Yes (Hospitalization)
  Sender: FDA-Public Use
  Company Number: DE-AMGEN-QUU419703

PATIENT
  Sex: Male
  Weight: 65 kg

DRUGS (6)
  1. ENBREL [Suspect]
     Indication: RHEUMATOID ARTHRITIS
     Route: 058
     Dates: start: 20090907
  2. ALLOPURINOL [Concomitant]
     Indication: HYPERURICAEMIA
     Route: 048
  3. PREDNISOLONE [Concomitant]
     Indication: RHEUMATOID ARTHRITIS
     Route: 048
  4. FERRO SANOL [Concomitant]
     Indication: ANAEMIA
     Dosage: UNKNOWN
     Route: 048
     Dates: start: 20090701
  5. LANTAREL [Concomitant]
     Indication: RHEUMATOID ARTHRITIS
     Route: 058
     Dates: start: 20090401
  6. FOLIC ACID [Concomitant]

REACTIONS (3)
  - ARTHRITIS INFECTIVE [None]
  - ERYTHEMA [None]
  - JOINT EFFUSION [None]
